FAERS Safety Report 10779621 (Version 1)
Quarter: 2015Q1

REPORT INFORMATION
  Report Type: Spontaneous
  Country: US (occurrence: US)
  Receive Date: 20150210
  Receipt Date: 20150210
  Transmission Date: 20150721
  Serious: No
  Sender: FDA-Public Use
  Company Number: US-JNJFOC-20150112546

PATIENT
  Age: 52 Year
  Sex: Male

DRUGS (2)
  1. UNSPECIFIED FENTANYL TRANSDERMAL SYSETM [Suspect]
     Active Substance: FENTANYL
     Indication: BONE DISORDER
     Route: 062
  2. UNSPECIFIED FENTANYL TRANSDERMAL SYSETM [Suspect]
     Active Substance: FENTANYL
     Indication: ARTHRITIS
     Route: 062

REACTIONS (2)
  - Drug dose omission [Unknown]
  - Pain [Not Recovered/Not Resolved]
